FAERS Safety Report 8889611 (Version 1)
Quarter: 2012Q4

REPORT INFORMATION
  Report Type: Spontaneous
  Country: US (occurrence: None)
  Receive Date: 20121105
  Receipt Date: 20121105
  Transmission Date: 20130627
  Serious: Yes (Death)
  Sender: FDA-Public Use
  Company Number: None

PATIENT
  Age: 56 Year
  Sex: Male
  Weight: 140.16 kg

DRUGS (1)
  1. BUMEX [Suspect]
     Dosage: 2mg 1day
     Dates: start: 20120213

REACTIONS (1)
  - Renal failure [None]
